FAERS Safety Report 7471582-0 (Version None)
Quarter: 2011Q2

REPORT INFORMATION
  Report Type: 
  Country: None (occurrence: None)
  Receive Date: 20110511
  Receipt Date: 20110403
  Transmission Date: 20111010
  Serious: Yes (Other)
  Sender: FDA-Public Use
  Company Number: US-BAYER-201036474NA

PATIENT
  Age: 29 Year
  Sex: Female
  Weight: 73 kg

DRUGS (12)
  1. YASMIN [Suspect]
  2. YASMIN [Suspect]
     Indication: PREMENSTRUAL SYNDROME
     Dosage: UNK
     Dates: start: 20050101
  3. ACETAMINOPHEN [Concomitant]
     Dosage: UNK
     Dates: start: 20080101
  4. PROZAC [Concomitant]
     Dosage: 20 MG, QD
     Route: 048
  5. YAZ [Suspect]
  6. SUBOXONE [Concomitant]
     Indication: DEPENDENCE
     Dosage: UNK
     Dates: start: 20090101
  7. PROTONIX [Concomitant]
     Dosage: 40 MG, BID
     Route: 048
  8. NEURONTIN [Concomitant]
     Indication: NERVE INJURY
     Dosage: UNK
     Dates: start: 20010101
  9. PERCOCET [Concomitant]
     Indication: PELVIC PAIN
     Dosage: UNK
     Dates: start: 20080101
  10. YAZ [Suspect]
     Indication: PREMENSTRUAL SYNDROME
     Dosage: UNK
     Route: 048
     Dates: start: 20080101
  11. ALEVE [Concomitant]
     Dosage: UNK
     Dates: start: 20080101
  12. PERCOCET [Concomitant]
     Indication: ABDOMINAL PAIN UPPER

REACTIONS (2)
  - CHOLECYSTITIS CHRONIC [None]
  - CHOLECYSTECTOMY [None]
